FAERS Safety Report 9990550 (Version 2)
Quarter: 2014Q2

REPORT INFORMATION
  Report Type: Spontaneous
  Country: US (occurrence: US)
  Receive Date: 20140310
  Receipt Date: 20140409
  Transmission Date: 20141212
  Serious: Yes (Other)
  Sender: FDA-Public Use
  Company Number: US-PFIZER INC-2014062080

PATIENT
  Age: 73 Year
  Sex: Female

DRUGS (2)
  1. EXEMESTANE [Suspect]
     Indication: BREAST CANCER
     Dosage: 25 MG, DAILY
     Route: 048
  2. ALEVE [Concomitant]
     Dosage: 1 DF, DAILY (Q1/DAILY)
     Dates: end: 201206

REACTIONS (2)
  - Hypertension [Recovered/Resolved]
  - Tachycardia [Unknown]
